FAERS Safety Report 8032297-3 (Version None)
Quarter: 2012Q1

REPORT INFORMATION
  Report Type: 
  Country: None (occurrence: None)
  Receive Date: 20120110
  Receipt Date: 20120105
  Transmission Date: 20120608
  Serious: Yes (Other)
  Sender: FDA-Public Use
  Company Number: SE-BRISTOL-MYERS SQUIBB COMPANY-16330565

PATIENT

DRUGS (1)
  1. ABILIFY [Suspect]

REACTIONS (2)
  - PERICARDITIS [None]
  - PLEURISY [None]
